FAERS Safety Report 8588583-1 (Version None)
Quarter: 2012Q3

REPORT INFORMATION
  Report Type: 
  Country: None (occurrence: None)
  Receive Date: 20120813
  Receipt Date: 20120806
  Transmission Date: 20120928
  Serious: Yes (Hospitalization, Other)
  Sender: FDA-Public Use
  Company Number: US-JNJFOC-20120306839

PATIENT
  Sex: Female
  Weight: 52.62 kg

DRUGS (11)
  1. REMICADE [Suspect]
     Route: 042
     Dates: start: 20090301, end: 20120101
  2. SYNTHROID [Concomitant]
     Indication: THYROID DISORDER
     Route: 048
  3. LIPITOR [Concomitant]
     Indication: BLOOD CHOLESTEROL
     Route: 048
  4. LASIX [Suspect]
     Indication: DIURETIC THERAPY
     Route: 048
     Dates: end: 20110101
  5. CARDIZEM [Concomitant]
     Indication: BLOOD PRESSURE
     Dosage: DOSE INCREASED FROM 3 POINT TO 6 POINT SOMETHING
     Route: 048
  6. CARDIZEM [Concomitant]
     Route: 048
  7. PROTONIX [Concomitant]
     Dates: end: 20120201
  8. RANITIDINE [Concomitant]
     Dates: start: 20120201
  9. REMICADE [Suspect]
     Route: 042
     Dates: start: 20090101
  10. REMICADE [Suspect]
     Indication: PSORIATIC ARTHROPATHY
     Route: 042
     Dates: start: 20100101, end: 20120101
  11. RECLAST [Concomitant]
     Route: 050

REACTIONS (10)
  - PNEUMONIA [None]
  - ECHOCARDIOGRAM ABNORMAL [None]
  - NON-HODGKIN'S LYMPHOMA [None]
  - CARDIAC FAILURE CONGESTIVE [None]
  - POLLAKIURIA [None]
  - VISUAL IMPAIRMENT [None]
  - MYOCARDIAL INFARCTION [None]
  - CEREBROVASCULAR ACCIDENT [None]
  - DYSPNOEA [None]
  - FALL [None]
